FAERS Safety Report 17969932 (Version 2)
Quarter: 2020Q3

REPORT INFORMATION
  Report Type: Spontaneous
  Country: MY (occurrence: MY)
  Receive Date: 20200701
  Receipt Date: 20200721
  Transmission Date: 20201103
  Serious: No
  Sender: FDA-Public Use
  Company Number: MY-TOLMAR, INC.-20MY021785

PATIENT
  Sex: Male

DRUGS (1)
  1. ELIGARD [Suspect]
     Active Substance: LEUPROLIDE ACETATE
     Indication: PRODUCT USED FOR UNKNOWN INDICATION
     Dosage: 22.5 MG, UNKNOWN FREQUENCY
     Route: 065

REACTIONS (4)
  - Wrong technique in product usage process [None]
  - Device leakage [None]
  - Needle issue [None]
  - Product administration error [None]
